FAERS Safety Report 6071677-2 (Version None)
Quarter: 2009Q1

REPORT INFORMATION
  Report Type: 
  Country: None (occurrence: None)
  Receive Date: 20090210
  Receipt Date: 20090205
  Transmission Date: 20090719
  Serious: Yes (Hospitalization)
  Sender: FDA-Public Use
  Company Number: US-BRISTOL-MYERS SQUIBB COMPANY-14494827

PATIENT
  Age: 79 Year
  Sex: Female

DRUGS (4)
  1. CISPLATIN [Suspect]
     Indication: PHARYNGEAL CANCER STAGE UNSPECIFIED
     Dosage: INITIAL DOSE 184MG,TOTAL AND INITIATED ON 03NOV2008
     Dates: start: 20081124, end: 20081124
  2. RADIATION THERAPY [Suspect]
     Indication: PHARYNGEAL CANCER STAGE UNSPECIFIED
     Dosage: 1DOSAGE FORM= 1200CGY;NO OF FRACTIONS: 6. 7000CGY ON 16-DEC-2008
     Dates: start: 20081107, end: 20081107
  3. FOLIC ACID [Concomitant]
  4. CHOLESTYRAMINE [Concomitant]

REACTIONS (2)
  - DEHYDRATION [None]
  - DYSPNOEA [None]
